FAERS Safety Report 10425867 (Version 2)
Quarter: 2014Q3

REPORT INFORMATION
  Report Type: Spontaneous
  Country: AU (occurrence: AU)
  Receive Date: 20140903
  Receipt Date: 20140903
  Transmission Date: 20150326
  Serious: Yes (Other)
  Sender: FDA-Public Use
  Company Number: AU-IPSEN BIOPHARMACEUTICALS, INC.-2014-4344

PATIENT
  Sex: Female

DRUGS (5)
  1. DYSPORT [Suspect]
     Active Substance: ABOBOTULINUMTOXINA
     Indication: SKIN WRINKLING
  2. DYSPORT [Suspect]
     Active Substance: ABOBOTULINUMTOXINA
     Indication: SKIN WRINKLING
     Dosage: NOT REPORTED
     Route: 065
     Dates: start: 2014, end: 2014
  3. DYSPORT [Suspect]
     Active Substance: ABOBOTULINUMTOXINA
     Indication: SKIN WRINKLING
     Dosage: 115 UNITS
     Route: 030
     Dates: start: 20140730, end: 20140730
  4. DYSPORT [Suspect]
     Active Substance: ABOBOTULINUMTOXINA
     Indication: OFF LABEL USE
  5. DYSPORT [Suspect]
     Active Substance: ABOBOTULINUMTOXINA
     Indication: SKIN WRINKLING

REACTIONS (8)
  - Nausea [Recovering/Resolving]
  - Muscular weakness [Recovering/Resolving]
  - Fatigue [Recovering/Resolving]
  - Influenza like illness [Recovering/Resolving]
  - Overdose [Unknown]
  - Chest pain [Recovering/Resolving]
  - Dyspnoea [Recovering/Resolving]
  - Headache [Unknown]

NARRATIVE: CASE EVENT DATE: 2014
